FAERS Safety Report 21485061 (Version 3)
Quarter: 2022Q4

REPORT INFORMATION
  Report Type: Report from Study
  Country: IE (occurrence: None)
  Receive Date: 20221020
  Receipt Date: 20221106
  Transmission Date: 20230113
  Serious: Yes (Hospitalization)
  Sender: FDA-Public Use
  Company Number: IE-ROCHE-3202214

PATIENT
  Age: 55 Year
  Sex: Female
  Weight: 72.4 kg

DRUGS (1)
  1. PRALSETINIB [Suspect]
     Active Substance: PRALSETINIB
     Indication: Non-small cell lung cancer metastatic
     Dosage: LAST DOSE WAS TAKEN ON 2/SEP/2022
     Route: 048
     Dates: start: 20220207

REACTIONS (2)
  - Serositis [Recovering/Resolving]
  - Enteritis [Recovering/Resolving]

NARRATIVE: CASE EVENT DATE: 20220831
